FAERS Safety Report 4661388-X (Version None)
Quarter: 2005Q2

REPORT INFORMATION
  Report Type: 
  Country: None (occurrence: None)
  Receive Date: 20050512
  Receipt Date: 20041119
  Transmission Date: 20051028
  Serious: Yes (Hospitalization)
  Sender: FDA-Public Use
  Company Number: 05-05-0774

PATIENT
  Age: 75 Year
  Sex: Female

DRUGS (4)
  1. VERAPAMIL HYDROCHLORIDE [Suspect]
     Indication: PALPITATIONS
     Dosage: 120MG OD SR ORAL
     Route: 048
     Dates: start: 20040915, end: 20041027
  2. SIMVASTATIN [Suspect]
     Indication: BLOOD CHOLESTEROL INCREASED
     Dosage: 80-20MG ORAL
     Route: 048
     Dates: end: 20041028
  3. LISINOPRIL [Concomitant]
  4. ISMN [Concomitant]

REACTIONS (2)
  - MYOSITIS [None]
  - RHABDOMYOLYSIS [None]
